FAERS Safety Report 8319024-7 (Version None)
Quarter: 2012Q2

REPORT INFORMATION
  Report Type: 
  Country: None (occurrence: None)
  Receive Date: 20120427
  Receipt Date: 20120418
  Transmission Date: 20120825
  Serious: Yes (Death)
  Sender: FDA-Public Use
  Company Number: AU-ACTELION-A-CH2012-64383

PATIENT
  Sex: Male

DRUGS (8)
  1. CHLORVESCENT [Concomitant]
  2. FUROSEMIDE [Concomitant]
  3. MAGNESIUM [Concomitant]
  4. DOBUTAMINE HCL [Concomitant]
  5. CO Q10 [Concomitant]
  6. SILDENAFIL [Concomitant]
  7. TRACLEER [Suspect]
     Indication: PULMONARY ARTERIAL HYPERTENSION
     Dosage: 62.5 MG, BID
     Route: 048
     Dates: start: 20120404, end: 20120414
  8. AMIODARONE HCL [Concomitant]

REACTIONS (2)
  - CARDIAC ARREST [None]
  - VENTRICULAR FAILURE [None]
